FAERS Safety Report 6973816-5 (Version None)
Quarter: 2010Q3

REPORT INFORMATION
  Report Type: 
  Country: None (occurrence: None)
  Receive Date: 20100909
  Receipt Date: 20100904
  Transmission Date: 20110219
  Serious: Yes (Death, Life-Threatening, Hospitalization)
  Sender: FDA-Public Use
  Company Number: A0880319A

PATIENT
  Sex: Female

DRUGS (4)
  1. AVANDIA [Suspect]
     Indication: PRODUCT USED FOR UNKNOWN INDICATION
     Dosage: 4MG PER DAY
     Route: 048
  2. GALVUS [Concomitant]
     Dosage: 1TAB PER DAY
     Route: 048
  3. SIMVASTATIN [Concomitant]
     Route: 065
  4. GLIMEPIRIDE [Concomitant]
     Route: 065

REACTIONS (1)
  - PNEUMONIA [None]
